FAERS Safety Report 8217643 (Version 2)
Quarter: 2012Q4

REPORT INFORMATION
  Report Type: 
  Country: US (occurrence: US)
  Receive Date: 20111101
  Receipt Date: 20121102
  Transmission Date: 20130627
  Serious: No
  Sender: FDA-Public Use
  Company Number: US-ABBOTT-11P-163-0696276-00

PATIENT
  Sex: Female
  Weight: 63.56 kg

DRUGS (7)
  1. BIAXIN [Suspect]
     Indication: SINUSITIS
     Dates: start: 2002
  2. UNKNOWN MEDICATION [Concomitant]
     Indication: OSTEOPOROSIS
  3. QVAR [Concomitant]
     Indication: SINUSITIS
  4. CLOPIDOGREN [Concomitant]
     Indication: CEREBROVASCULAR ACCIDENT
  5. CA CARBONATE [Concomitant]
     Indication: MINERAL SUPPLEMENTATION
  6. NASONEX [Concomitant]
     Indication: CHRONIC SINUSITIS
  7. UNKNOWN EYE MEDICATION [Concomitant]
     Indication: EYE DISORDER

REACTIONS (2)
  - Dysgeusia [Not Recovered/Not Resolved]
  - Skin odour abnormal [Not Recovered/Not Resolved]
